FAERS Safety Report 26137473 (Version 1)
Quarter: 2025Q4

REPORT INFORMATION
  Report Type: Spontaneous
  Country: EG (occurrence: EG)
  Receive Date: 20251209
  Receipt Date: 20251209
  Transmission Date: 20260118
  Serious: Yes (Hospitalization)
  Sender: MERCK SHARP & DOHME LLC
  Company Number: EG-009507513-2356569

PATIENT
  Age: 24 Year
  Sex: Female

DRUGS (2)
  1. KEYTRUDA [Suspect]
     Active Substance: PEMBROLIZUMAB
     Indication: T-cell lymphoma refractory
     Route: 042
     Dates: start: 20250914, end: 20250914
  2. KEYTRUDA [Suspect]
     Active Substance: PEMBROLIZUMAB
     Indication: T-cell lymphoma refractory
     Route: 042
     Dates: start: 20250821, end: 20250821

REACTIONS (11)
  - Febrile neutropenia [Unknown]
  - Haemorrhoids [Recovered/Resolved]
  - Conjunctivitis allergic [Recovered/Resolved]
  - Diplopia [Unknown]
  - Inappropriate schedule of product administration [Unknown]
  - Abdominal pain [Recovered/Resolved]
  - Headache [Unknown]
  - Jaundice [Recovering/Resolving]
  - Oocyte harvest [Unknown]
  - Red blood cell transfusion [Recovered/Resolved]
  - Platelet transfusion [Recovered/Resolved]

NARRATIVE: CASE EVENT DATE: 20250101
